FAERS Safety Report 15462757 (Version 1)
Quarter: 2018Q4

REPORT INFORMATION
  Report Type: Spontaneous
  Country: US (occurrence: US)
  Receive Date: 20181004
  Receipt Date: 20181004
  Transmission Date: 20190204
  Serious: No
  Sender: FDA-Public Use
  Company Number: US-JNJFOC-20180916268

PATIENT
  Age: 1 Year
  Sex: Female
  Weight: 7.71 kg

DRUGS (2)
  1. ZYRTEC 10MG IR TABLET BONUS 30+10 [Suspect]
     Active Substance: CETIRIZINE HYDROCHLORIDE
     Route: 048
  2. ZYRTEC 10MG IR TABLET BONUS 30+10 [Suspect]
     Active Substance: CETIRIZINE HYDROCHLORIDE
     Indication: ACCIDENTAL EXPOSURE TO PRODUCT
     Dosage: NOT SURE ONCE
     Route: 048
     Dates: start: 20180911, end: 20180911

REACTIONS (1)
  - Accidental exposure to product [Unknown]

NARRATIVE: CASE EVENT DATE: 20180911
